FAERS Safety Report 10022954 (Version 1)
Quarter: 2014Q1

REPORT INFORMATION
  Report Type: Spontaneous
  Country: US (occurrence: US)
  Receive Date: 20140319
  Receipt Date: 20140319
  Transmission Date: 20141002
  Serious: No
  Sender: FDA-Public Use
  Company Number: US-SA-2014SA020733

PATIENT
  Age: 80 Year
  Sex: Male

DRUGS (6)
  1. NASACORT ALLERGY [Suspect]
     Indication: HYPERSENSITIVITY
     Route: 065
     Dates: start: 20140217
  2. NASACORT ALLERGY [Suspect]
     Indication: RHINORRHOEA
     Route: 065
     Dates: start: 20140217
  3. NASACORT ALLERGY [Suspect]
     Indication: RHINORRHOEA
     Route: 065
     Dates: start: 20140217
  4. ALL OTHER THERAPEUTIC PRODUCTS [Concomitant]
     Indication: MULTIPLE ALLERGIES
     Route: 065
  5. INSULIN [Concomitant]
     Indication: DIABETES MELLITUS
  6. DIPHENHYDRAMINE [Concomitant]

REACTIONS (3)
  - Feeling abnormal [Unknown]
  - Sleep disorder [Unknown]
  - Drug ineffective [Unknown]
